FAERS Safety Report 8028023-4 (Version None)
Quarter: 2012Q1

REPORT INFORMATION
  Report Type: 
  Country: None (occurrence: None)
  Receive Date: 20120106
  Receipt Date: 20111003
  Transmission Date: 20120608
  Serious: Yes (Life-Threatening, Hospitalization, Disabling)
  Sender: FDA-Public Use
  Company Number: US-MYLANLABS-2009S1006112

PATIENT
  Sex: Female

DRUGS (2)
  1. DILANTIN [Suspect]
     Indication: CONVULSION
     Dates: start: 20070301
  2. PHENYTOIN SODIUM CAP [Suspect]
     Indication: CONVULSION
     Dates: start: 20070301

REACTIONS (1)
  - STEVENS-JOHNSON SYNDROME [None]
